FAERS Safety Report 6670821-3 (Version None)
Quarter: 2010Q2

REPORT INFORMATION
  Report Type: 
  Country: None (occurrence: None)
  Receive Date: 20100407
  Receipt Date: 20100401
  Transmission Date: 20101027
  Serious: Yes (Death, Other)
  Sender: FDA-Public Use
  Company Number: PHHO2010US02197

PATIENT
  Sex: Male

DRUGS (2)
  1. ALISKIREN ALI+TAB+CF [Suspect]
     Dosage: UNK
     Route: 048
     Dates: start: 20090605
  2. COMPARATOR ENALAPRIL [Suspect]
     Indication: CARDIAC DISORDER
     Dosage: UNK
     Route: 048
     Dates: start: 20090429

REACTIONS (6)
  - DISEASE PROGRESSION [None]
  - DYSPNOEA [None]
  - FALL [None]
  - PULMONARY OEDEMA [None]
  - RESPIRATORY ARREST [None]
  - RESPIRATORY FAILURE [None]
